FAERS Safety Report 5643072-9 (Version None)
Quarter: 2008Q1

REPORT INFORMATION
  Report Type: 
  Country: None (occurrence: None)
  Receive Date: 20080228
  Receipt Date: 20080219
  Transmission Date: 20080703
  Serious: Yes (Other)
  Sender: FDA-Public Use
  Company Number: PHEH2008US01996

PATIENT
  Sex: Female

DRUGS (1)
  1. LOTREL [Suspect]
     Dosage: 5 MG AMLOD/10 MG BENZA
     Dates: start: 20060101

REACTIONS (1)
  - SARCOIDOSIS [None]
